FAERS Safety Report 7486622-2 (Version None)
Quarter: 2011Q2

REPORT INFORMATION
  Report Type: 
  Country: None (occurrence: None)
  Receive Date: 20110517
  Receipt Date: 20110509
  Transmission Date: 20111010
  Serious: Yes (Hospitalization, Other)
  Sender: FDA-Public Use
  Company Number: JP-PFIZER INC-2011102601

PATIENT
  Age: 71 Year
  Sex: Female
  Weight: 38 kg

DRUGS (13)
  1. SILDENAFIL CITRATE [Suspect]
     Dosage: 20 MG, 2X/DAY
     Route: 048
     Dates: start: 20081227, end: 20101020
  2. FUROSEMIDE [Concomitant]
     Dosage: UNK
     Route: 048
  3. WARFARIN [Concomitant]
     Dosage: UNK
     Route: 048
  4. DORNER [Concomitant]
     Dosage: UNK
     Route: 048
     Dates: start: 20100819
  5. LEVOFLOXACIN [Concomitant]
     Dosage: UNK
     Route: 048
     Dates: start: 20100826, end: 20100829
  6. ALDACTONE [Concomitant]
     Dosage: UNK
     Route: 048
  7. DORNER [Concomitant]
     Indication: PULMONARY HYPERTENSION
     Dosage: UNK
     Route: 048
     Dates: end: 20100810
  8. SILDENAFIL CITRATE [Suspect]
     Indication: PULMONARY ARTERIAL HYPERTENSION
     Dosage: 20 MG, 3X/DAY
     Route: 048
     Dates: start: 20081208, end: 20081212
  9. SILDENAFIL CITRATE [Suspect]
     Dosage: 20 MG, 1X/DAY
     Route: 048
     Dates: start: 20081213, end: 20081227
  10. MAGNESIUM OXIDE [Concomitant]
     Dosage: UNK
     Route: 048
  11. CARVEDILOL [Concomitant]
     Dosage: UNK
     Route: 048
  12. SILDENAFIL CITRATE [Suspect]
     Dosage: 20 MG, 1X/DAY
     Route: 048
     Dates: start: 20101021, end: 20101022
  13. LANSOPRAZOLE [Concomitant]
     Dosage: UNK
     Route: 048

REACTIONS (5)
  - BLOOD PRESSURE DECREASED [None]
  - INTERNATIONAL NORMALISED RATIO INCREASED [None]
  - OEDEMA PERIPHERAL [None]
  - TACHYCARDIA [None]
  - CARDIAC FAILURE CONGESTIVE [None]
